FAERS Safety Report 25127807 (Version 2)
Quarter: 2025Q2

REPORT INFORMATION
  Report Type: Report from Study
  Country: GB (occurrence: GB)
  Receive Date: 20250327
  Receipt Date: 20250417
  Transmission Date: 20250717
  Serious: Yes (Hospitalization, Other)
  Sender: SAMSUNG BIOEPIS
  Company Number: GB-SAMSUNG BIOEPIS-SB-2024-37624

PATIENT
  Age: 56 Year
  Sex: Female

DRUGS (3)
  1. ETANERCEPT [Suspect]
     Active Substance: ETANERCEPT
     Indication: Axial spondyloarthritis
     Route: 058
     Dates: start: 20240717
  2. ETANERCEPT [Suspect]
     Active Substance: ETANERCEPT
     Route: 058
     Dates: start: 20240618, end: 202412
  3. METHOTREXATE SODIUM [Suspect]
     Active Substance: METHOTREXATE SODIUM
     Indication: Axial spondyloarthritis

REACTIONS (33)
  - Lower respiratory tract infection [Unknown]
  - Dysstasia [Unknown]
  - Feeding disorder [Unknown]
  - Oropharyngeal pain [Unknown]
  - Malaise [Unknown]
  - Hyperhidrosis [Unknown]
  - Pyrexia [Recovered/Resolved]
  - Dyspnoea [Unknown]
  - Psoriasis [Unknown]
  - Axial spondyloarthritis [Unknown]
  - Condition aggravated [Unknown]
  - Toothache [Unknown]
  - Feeling abnormal [Unknown]
  - Influenza like illness [Unknown]
  - Cold sweat [Unknown]
  - Ageusia [Unknown]
  - Tonsillitis [Unknown]
  - Sinusitis [Unknown]
  - Hypoaesthesia [Unknown]
  - Musculoskeletal discomfort [Unknown]
  - Limb injury [Unknown]
  - Contusion [Unknown]
  - Injection site pain [Unknown]
  - Injection site pruritus [Unknown]
  - Injection site bruising [Unknown]
  - Anxiety [Unknown]
  - Migraine [Unknown]
  - Crying [Unknown]
  - Insomnia [Unknown]
  - Therapeutic product effect decreased [Unknown]
  - Viral infection [Unknown]
  - Illness [Unknown]
  - Infection [Unknown]
